FAERS Safety Report 13531264 (Version 8)
Quarter: 2017Q3

REPORT INFORMATION
  Report Type: Spontaneous
  Country: US (occurrence: US)
  Receive Date: 20170510
  Receipt Date: 20170918
  Transmission Date: 20171127
  Serious: Yes (Other)
  Sender: FDA-Public Use
  Company Number: US-PFIZER INC-2017197660

PATIENT
  Age: 70 Year
  Sex: Male
  Weight: 81.17 kg

DRUGS (5)
  1. SUTENT [Suspect]
     Active Substance: SUNITINIB MALATE
     Indication: RENAL CANCER STAGE IV
     Dosage: 50 MG, UNK
     Dates: start: 20170410
  2. AMLODIPINE [Concomitant]
     Active Substance: AMLODIPINE BESYLATE
     Dosage: UNK
  3. BENAZEPRIL [Concomitant]
     Active Substance: BENAZEPRIL HYDROCHLORIDE
     Dosage: UNK
  4. ZOMETA [Concomitant]
     Active Substance: ZOLEDRONIC ACID
     Dosage: UNK
  5. SUTENT [Suspect]
     Active Substance: SUNITINIB MALATE
     Dosage: 50 MG, CYCLIC (28 DAYS ON/14 DAYS OFF)
     Dates: start: 20170414

REACTIONS (30)
  - Tooth abscess [Unknown]
  - Hypersensitivity [Unknown]
  - Renal disorder [Unknown]
  - Lip swelling [Unknown]
  - Throat irritation [Unknown]
  - Pharyngeal oedema [Unknown]
  - Mouth swelling [Unknown]
  - Decreased appetite [Recovering/Resolving]
  - Yellow skin [Unknown]
  - Malaise [Unknown]
  - Dysphagia [Unknown]
  - Condition aggravated [Unknown]
  - Skin discolouration [Unknown]
  - Dysgeusia [Unknown]
  - Dyspepsia [Unknown]
  - Hyperkeratosis [Unknown]
  - Diarrhoea [Unknown]
  - Weight decreased [Unknown]
  - Lymph nodes scan abnormal [Unknown]
  - Limb mass [Unknown]
  - Epistaxis [Unknown]
  - Pain in extremity [Unknown]
  - Eating disorder [Unknown]
  - Swelling face [Not Recovered/Not Resolved]
  - Pain in jaw [Recovered/Resolved]
  - Fatigue [Unknown]
  - Lip blister [Unknown]
  - Asthenia [Unknown]
  - Abdominal discomfort [Unknown]
  - Muscle tightness [Unknown]
